FAERS Safety Report 5931799-0 (Version None)
Quarter: 2008Q4

REPORT INFORMATION
  Report Type: 
  Country: None (occurrence: None)
  Receive Date: 20081022
  Receipt Date: 20081006
  Transmission Date: 20090506
  Serious: Yes (Hospitalization, Other)
  Sender: FDA-Public Use
  Company Number: 2008100028

PATIENT
  Age: 23 Year
  Sex: Male

DRUGS (1)
  1. SOMA [Suspect]
     Dosage: 2100 MG, DAILY ORAL
     Route: 048

REACTIONS (5)
  - AMNESIA [None]
  - COGNITIVE DISORDER [None]
  - DRUG ABUSE [None]
  - LOSS OF CONSCIOUSNESS [None]
  - PAIN [None]
